FAERS Safety Report 8287164-7 (Version None)
Quarter: 2012Q2

REPORT INFORMATION
  Report Type: 
  Country: None (occurrence: None)
  Receive Date: 20120416
  Receipt Date: 20120406
  Transmission Date: 20120825
  Serious: Yes (Other)
  Sender: FDA-Public Use
  Company Number: US-BAYER-2012-034621

PATIENT
  Age: 27 Year
  Sex: Female
  Weight: 56.689 kg

DRUGS (2)
  1. YASMIN [Suspect]
     Dosage: UNK
     Route: 048
     Dates: start: 20020101, end: 20040101
  2. YAZ [Suspect]
     Dosage: UNK
     Route: 048
     Dates: start: 20060101, end: 20080101

REACTIONS (3)
  - ORGAN FAILURE [None]
  - BILIARY DYSKINESIA [None]
  - INJURY [None]
